FAERS Safety Report 5652853-7 (Version None)
Quarter: 2008Q1

REPORT INFORMATION
  Report Type: 
  Country: None (occurrence: None)
  Receive Date: 20080131
  Receipt Date: 20071212
  Transmission Date: 20080703
  Serious: No
  Sender: FDA-Public Use
  Company Number: US200710001172

PATIENT
  Age: 68 Year
  Sex: Female
  Weight: 101.1 kg

DRUGS (7)
  1. BYETTA [Suspect]
     Indication: TYPE 2 DIABETES MELLITUS
     Dosage: 5 UG, 2/D, SUBCUTANEOUS, 5 UG, 2/D, SUBCUTANEOUS; 10 UG, 2/D, SUBCUTANEOUS
     Route: 058
     Dates: start: 20070901, end: 20071123
  2. BYETTA [Suspect]
     Indication: TYPE 2 DIABETES MELLITUS
     Dosage: 5 UG, 2/D, SUBCUTANEOUS, 5 UG, 2/D, SUBCUTANEOUS; 10 UG, 2/D, SUBCUTANEOUS
     Route: 058
     Dates: start: 20071002, end: 20071123
  3. BYETTA [Suspect]
     Indication: TYPE 2 DIABETES MELLITUS
     Dosage: 5 UG, 2/D, SUBCUTANEOUS, 5 UG, 2/D, SUBCUTANEOUS; 10 UG, 2/D, SUBCUTANEOUS
     Route: 058
     Dates: start: 20071123
  4. GLUCOPHAGE /USA/ (METFORMIN HYDROCHLORIDE) [Concomitant]
  5. GLIPIZIDE [Concomitant]
  6. GLYBURIDE [Concomitant]
  7. ASPIRIN /USA/ (ACETYLSALICYLIC ACID) [Concomitant]

REACTIONS (6)
  - BLOOD GLUCOSE INCREASED [None]
  - DECREASED APPETITE [None]
  - FEELING ABNORMAL [None]
  - HICCUPS [None]
  - INJECTION SITE BRUISING [None]
  - INJECTION SITE IRRITATION [None]
